FAERS Safety Report 6395938-2 (Version None)
Quarter: 2009Q4

REPORT INFORMATION
  Report Type: 
  Country: None (occurrence: None)
  Receive Date: 20091009
  Receipt Date: 20091007
  Transmission Date: 20100525
  Serious: Yes (Life-Threatening)
  Sender: FDA-Public Use
  Company Number: PL-SANOFI-SYNTHELABO-A01200910370

PATIENT
  Weight: 80 kg

DRUGS (1)
  1. ELOXATIN [Suspect]
     Indication: COLORECTAL CANCER METASTATIC
     Dosage: 240 MG
     Route: 042
     Dates: start: 20091006, end: 20091006

REACTIONS (3)
  - SHOCK [None]
  - STRIDOR [None]
  - SYNCOPE [None]
